FAERS Safety Report 6778908-1 (Version None)
Quarter: 2010Q2

REPORT INFORMATION
  Report Type: 
  Country: None (occurrence: None)
  Receive Date: 20100618
  Receipt Date: 20100609
  Transmission Date: 20101027
  Serious: Yes (Other)
  Sender: FDA-Public Use
  Company Number: TH-JNJFOC-20100605395

PATIENT
  Age: 55 Year
  Sex: Female

DRUGS (2)
  1. RISPERIDONE [Suspect]
     Indication: DEPRESSED MOOD
     Route: 065
  2. RISPERIDONE [Suspect]
     Route: 065

REACTIONS (2)
  - HALLUCINATION, VISUAL [None]
  - OFF LABEL USE [None]
